FAERS Safety Report 12421717 (Version 1)
Quarter: 2016Q2

REPORT INFORMATION
  Report Type: Spontaneous
  Country: US (occurrence: US)
  Receive Date: 20160531
  Receipt Date: 20160531
  Transmission Date: 20160815
  Serious: No
  Sender: FDA-Public Use
  Company Number: US-BIOGEN-2016BI00234063

PATIENT
  Sex: Female

DRUGS (3)
  1. AVONEX [Suspect]
     Active Substance: INTERFERON BETA-1A
     Route: 065
  2. AVONEX [Suspect]
     Active Substance: INTERFERON BETA-1A
     Route: 065
     Dates: start: 2000
  3. AVONEX [Suspect]
     Active Substance: INTERFERON BETA-1A
     Indication: MULTIPLE SCLEROSIS
     Route: 065
     Dates: start: 20010423

REACTIONS (10)
  - Nausea [Unknown]
  - Inappropriate schedule of drug administration [Recovered/Resolved]
  - Urticaria [Unknown]
  - Rash macular [Unknown]
  - Hypoaesthesia [Unknown]
  - Fall [Recovered/Resolved]
  - Chills [Unknown]
  - Scar [Unknown]
  - Vomiting [Unknown]
  - Influenza like illness [Unknown]

NARRATIVE: CASE EVENT DATE: 2000
